FAERS Safety Report 16754589 (Version 1)
Quarter: 2019Q4

REPORT INFORMATION
  Report Type: Spontaneous
  Country: US (occurrence: US)
  Receive Date: 20190828
  Receipt Date: 20190828
  Transmission Date: 20200122
  Serious: Yes (Disabling)
  Sender: FDA-Public Use
  Company Number: None

PATIENT
  Age: 52 Year
  Sex: Female
  Weight: 118.35 kg

DRUGS (20)
  1. PANTOPRAZOLE 40 MG [Suspect]
     Active Substance: PANTOPRAZOLE SODIUM
     Indication: ENDOSCOPY
     Dosage: ?          QUANTITY:90 TABLET(S);OTHER ROUTE:BY MOUTH 30 MIN BEFORE BREAKFAST?
     Dates: start: 20190824, end: 20190827
  2. PAPAYA ENZYME [Concomitant]
  3. MORINGA [Concomitant]
  4. GINGER. [Concomitant]
     Active Substance: GINGER
  5. D-LIMONENE [Concomitant]
  6. PROPRANOLOL XR [Concomitant]
  7. BEATS [Concomitant]
  8. CHLORELLA [Concomitant]
  9. MAGNESIUM [Concomitant]
     Active Substance: MAGNESIUM
  10. VITAMIN B12 [Concomitant]
     Active Substance: CYANOCOBALAMIN
  11. BEE POLLEN [Concomitant]
     Active Substance: BEE POLLEN
  12. COLLOIDAL SILVER [Concomitant]
     Active Substance: SILVER
  13. TUMERIC [Concomitant]
     Active Substance: HERBALS\TURMERIC
  14. CINNAMON. [Concomitant]
     Active Substance: CINNAMON
  15. COCONUT OIL [Concomitant]
     Active Substance: COCONUT OIL
  16. VITAMIN D3 [Concomitant]
     Active Substance: CHOLECALCIFEROL
  17. MIGRAINE MOTRIN [Concomitant]
  18. CALCIUM [Concomitant]
     Active Substance: CALCIUM
  19. PANTOPRAZOLE 40 MG [Suspect]
     Active Substance: PANTOPRAZOLE SODIUM
     Indication: GASTROOESOPHAGEAL REFLUX DISEASE
     Dosage: ?          QUANTITY:90 TABLET(S);OTHER ROUTE:BY MOUTH 30 MIN BEFORE BREAKFAST?
     Dates: start: 20190824, end: 20190827
  20. SPIRULINA [Concomitant]
     Active Substance: SPIRULINA

REACTIONS (9)
  - Lethargy [None]
  - Muscle spasms [None]
  - Myalgia [None]
  - Fatigue [None]
  - Bone pain [None]
  - Dizziness [None]
  - Sciatica [None]
  - Blood magnesium decreased [None]
  - Arthralgia [None]

NARRATIVE: CASE EVENT DATE: 20190824
